FAERS Safety Report 7057134-5 (Version None)
Quarter: 2010Q4

REPORT INFORMATION
  Report Type: 
  Country: None (occurrence: None)
  Receive Date: 20101021
  Receipt Date: 20101021
  Transmission Date: 20110411
  Serious: No
  Sender: FDA-Public Use
  Company Number: None

PATIENT
  Age: 27 Year
  Sex: Male
  Weight: 79.3795 kg

DRUGS (2)
  1. OXYCONTIN [Suspect]
     Indication: INTERVERTEBRAL DISC PROTRUSION
     Dosage: 40MG TID PO
     Route: 048
     Dates: start: 20100603, end: 20101019
  2. OXYCONTIN [Suspect]
     Indication: SCIATICA
     Dosage: 40MG TID PO
     Route: 048
     Dates: start: 20100603, end: 20101019

REACTIONS (2)
  - ACTIVITIES OF DAILY LIVING IMPAIRED [None]
  - INADEQUATE ANALGESIA [None]
